FAERS Safety Report 15735397 (Version 1)
Quarter: 2018Q4

REPORT INFORMATION
  Report Type: Spontaneous
  Country: US (occurrence: US)
  Receive Date: 20181218
  Receipt Date: 20181218
  Transmission Date: 20190205
  Serious: Yes (Hospitalization, Other)
  Sender: FDA-Public Use
  Company Number: US-PFIZER INC-2018513825

PATIENT
  Age: 58 Year
  Sex: Male
  Weight: 111.13 kg

DRUGS (6)
  1. BABY ASPIRIN [Concomitant]
     Active Substance: ASPIRIN
     Dosage: UNK
  2. METOPROLOL. [Concomitant]
     Active Substance: METOPROLOL
     Dosage: 75 MG, 2X/DAY
     Route: 048
  3. DEPAKOTE [Concomitant]
     Active Substance: DIVALPROEX SODIUM
     Indication: AFFECTIVE DISORDER
     Dosage: 1250 MG, AT NIGHT (5 TABLETS)
     Route: 048
  4. NEURONTIN [Concomitant]
     Active Substance: GABAPENTIN
     Indication: PARAESTHESIA
     Dosage: 300 MG, 3X/DAY
     Route: 048
  5. METOPROLOL. [Concomitant]
     Active Substance: METOPROLOL
     Indication: CARDIAC DISORDER
     Dosage: 50 MG, UNK
  6. AMIODARONE HCL [Suspect]
     Active Substance: AMIODARONE HYDROCHLORIDE
     Indication: ARRHYTHMIA
     Dosage: 400 MG, 2X/DAY (2 TABLETS)
     Route: 048
     Dates: start: 201801, end: 201801

REACTIONS (7)
  - Cardiac arrest [Unknown]
  - Chest pain [Unknown]
  - Hypersensitivity [Unknown]
  - Swelling face [Unknown]
  - Vision blurred [Unknown]
  - Dyspnoea [Unknown]
  - Suffocation feeling [Unknown]

NARRATIVE: CASE EVENT DATE: 201801
